FAERS Safety Report 15173140 (Version 1)
Quarter: 2018Q3

REPORT INFORMATION
  Report Type: Spontaneous
  Country: PT (occurrence: PT)
  Receive Date: 20180720
  Receipt Date: 20180720
  Transmission Date: 20181010
  Serious: Yes (Other)
  Sender: FDA-Public Use
  Company Number: PT-CMP PHARMA-2018CMP00021

PATIENT
  Age: 14 Year
  Sex: Female

DRUGS (2)
  1. TRIAMCINOLONE [Suspect]
     Active Substance: TRIAMCINOLONE
     Indication: MACULAR OEDEMA
     Dosage: UNK, ONCE (INTRAVITREAL INJECTION IN THE RIGHT EYE)
     Route: 031
  2. TRIAMCINOLONE [Suspect]
     Active Substance: TRIAMCINOLONE
     Dosage: UNK, ONCE (SUBCONJUNCTIVAL INJECTION IN THE LEFT EYE)

REACTIONS (1)
  - Ocular hypertension [Recovered/Resolved]
